FAERS Safety Report 19721840 (Version 1)
Quarter: 2021Q3

REPORT INFORMATION
  Report Type: Spontaneous
  Country: IN (occurrence: IN)
  Receive Date: 20210818
  Receipt Date: 20210818
  Transmission Date: 20211014
  Serious: Yes (Other)
  Sender: FDA-Public Use
  Company Number: IN-VIWITPHARMA-2021VWTLIT00039

PATIENT
  Age: 54 Year
  Sex: Female

DRUGS (6)
  1. TOPIRAMATE. [Suspect]
     Active Substance: TOPIRAMATE
     Indication: DEPRESSION
     Dosage: 100 MG PER DAY
     Route: 048
  2. ATROPINE. [Interacting]
     Active Substance: ATROPINE
     Indication: UVEITIS
     Route: 061
  3. ACETAZOLAMIDE. [Concomitant]
     Active Substance: ACETAZOLAMIDE
     Indication: PRODUCT USED FOR UNKNOWN INDICATION
     Route: 048
  4. PREDNISOLONE ACETATE. [Interacting]
     Active Substance: PREDNISOLONE ACETATE
     Indication: UVEITIS
     Route: 061
  5. PREDNISOLONE. [Interacting]
     Active Substance: PREDNISOLONE
     Indication: UVEITIS
     Dosage: 1 G/KG BODY WEIGHT
     Route: 048
  6. TIMOLOL. [Concomitant]
     Active Substance: TIMOLOL
     Indication: PRODUCT USED FOR UNKNOWN INDICATION
     Route: 061

REACTIONS (13)
  - Pupil fixed [Recovering/Resolving]
  - Vision blurred [Recovering/Resolving]
  - Endophthalmitis [Recovering/Resolving]
  - Visual impairment [Recovering/Resolving]
  - Angle closure glaucoma [Recovering/Resolving]
  - Hypopyon [Recovered/Resolved]
  - Uveitis [Recovering/Resolving]
  - Mydriasis [Recovering/Resolving]
  - Cataract [Recovering/Resolving]
  - Eye pain [Recovering/Resolving]
  - Eye inflammation [Recovering/Resolving]
  - Choroidal detachment [Recovered/Resolved]
  - Corneal oedema [Recovering/Resolving]
